FAERS Safety Report 4592015-8 (Version None)
Quarter: 2005Q1

REPORT INFORMATION
  Report Type: 
  Country: None (occurrence: None)
  Receive Date: 20050125
  Receipt Date: 20041012
  Transmission Date: 20050727
  Serious: Yes (Other)
  Sender: FDA-Public Use
  Company Number: USA040773178

PATIENT
  Age: 55 Year
  Sex: Male
  Weight: 89 kg

DRUGS (3)
  1. FORTEO [Suspect]
     Indication: OSTEOPOROSIS
     Dosage: 20 UG/1DAY
     Dates: start: 20040602
  2. EFFEXOR XR [Concomitant]
  3. CRESTOR [Concomitant]

REACTIONS (8)
  - COGNITIVE DISORDER [None]
  - DEPRESSION [None]
  - DISTURBANCE IN ATTENTION [None]
  - DIZZINESS [None]
  - FEELING ABNORMAL [None]
  - MENTAL IMPAIRMENT [None]
  - SLUGGISHNESS [None]
  - SYNCOPE [None]
